FAERS Safety Report 17591899 (Version 1)
Quarter: 2020Q1

REPORT INFORMATION
  Report Type: Spontaneous
  Country: US (occurrence: US)
  Receive Date: 20200327
  Receipt Date: 20200327
  Transmission Date: 20200409
  Serious: Yes (Other)
  Sender: FDA-Public Use
  Company Number: None

PATIENT
  Age: 74 Year
  Sex: Female
  Weight: 85.5 kg

DRUGS (3)
  1. AUSTEDO [Suspect]
     Active Substance: DEUTETRABENAZINE
     Indication: TREMOR
     Route: 048
     Dates: start: 20200319, end: 20200325
  2. AUSTEDO [Suspect]
     Active Substance: DEUTETRABENAZINE
     Indication: TREMOR
     Route: 048
     Dates: start: 20200326
  3. ALPRAZOLAM 1MG TABLETS [Concomitant]
     Active Substance: ALPRAZOLAM

REACTIONS (2)
  - Flatulence [None]
  - Dizziness [None]

NARRATIVE: CASE EVENT DATE: 20200327
